FAERS Safety Report 6542821-5 (Version None)
Quarter: 2010Q1

REPORT INFORMATION
  Report Type: 
  Country: None (occurrence: None)
  Receive Date: 20100114
  Receipt Date: 20091226
  Transmission Date: 20100710
  Serious: Yes (Other)
  Sender: FDA-Public Use
  Company Number: JPI-P-009456

PATIENT
  Sex: Female

DRUGS (2)
  1. LUVOX [Suspect]
     Indication: PANIC DISORDER
     Dosage: (75 MG,1 D),ORAL
     Route: 048
  2. ETHYL LOFLAZEPATE [Concomitant]

REACTIONS (2)
  - DRUG EXPOSURE DURING PREGNANCY [None]
  - PREGNANCY [None]
